FAERS Safety Report 7789217-6 (Version None)
Quarter: 2011Q3

REPORT INFORMATION
  Report Type: 
  Country: None (occurrence: None)
  Receive Date: 20110930
  Receipt Date: 20110926
  Transmission Date: 20111222
  Serious: Yes (Hospitalization, Other)
  Sender: FDA-Public Use
  Company Number: US-AMGEN-USASP2011049520

PATIENT
  Age: 17 Year
  Sex: Female

DRUGS (1)
  1. ENBREL [Suspect]
     Indication: JUVENILE ARTHRITIS
     Dosage: 25 MG, 2 TIMES/WK
     Dates: start: 20040813, end: 20060406

REACTIONS (7)
  - TRAUMATIC LUNG INJURY [None]
  - RESPIRATORY ARREST [None]
  - NASOPHARYNGITIS [None]
  - LYMPHADENOPATHY [None]
  - HISTIOCYTOSIS HAEMATOPHAGIC [None]
  - OROPHARYNGEAL PAIN [None]
  - INFECTIOUS MONONUCLEOSIS [None]
